FAERS Safety Report 5771888-7 (Version None)
Quarter: 2008Q2

REPORT INFORMATION
  Report Type: 
  Country: None (occurrence: None)
  Receive Date: 20080613
  Receipt Date: 20080609
  Transmission Date: 20081010
  Serious: Yes (Hospitalization)
  Sender: FDA-Public Use
  Company Number: B0524589A

PATIENT
  Age: 72 Year
  Sex: Female

DRUGS (3)
  1. ZOVIRAX [Suspect]
     Route: 048
     Dates: start: 20080323, end: 20080327
  2. CLAMOXYL [Suspect]
     Route: 048
     Dates: start: 20080323, end: 20080401
  3. BACTRIM [Suspect]
     Route: 048
     Dates: start: 20080323, end: 20080401

REACTIONS (2)
  - NORMOCHROMIC NORMOCYTIC ANAEMIA [None]
  - RENAL FAILURE [None]
